FAERS Safety Report 12702706 (Version 1)
Quarter: 2016Q3

REPORT INFORMATION
  Report Type: Other
  Country: US (occurrence: US)
  Receive Date: 20160831
  Receipt Date: 20160831
  Transmission Date: 20161109
  Serious: Yes (Hospitalization)
  Sender: FDA-Public Use
  Company Number: US-LEHIGH_VALLEY-USA-POI0580201600104

PATIENT
  Age: 42 Year
  Sex: Female

DRUGS (1)
  1. LEVOLET (LEVOTHYROXINE) [Suspect]
     Active Substance: LEVOTHYROXINE
     Indication: HYPOTHYROIDISM
     Dosage: 15 TABLETS, TAKEN ONCE
     Dates: start: 201508, end: 201508

REACTIONS (7)
  - Overdose [Recovering/Resolving]
  - Hyporeflexia [Recovered/Resolved]
  - Delirium [Recovered/Resolved]
  - Blood lactic acid increased [Recovered/Resolved]
  - Suicide attempt [Recovering/Resolving]
  - Poisoning deliberate [Recovering/Resolving]
  - Muscular weakness [Recovered/Resolved]

NARRATIVE: CASE EVENT DATE: 201508
